FAERS Safety Report 4540851-6 (Version None)
Quarter: 2004Q4

REPORT INFORMATION
  Report Type: 
  Country: None (occurrence: None)
  Receive Date: 20041228
  Receipt Date: 20041216
  Transmission Date: 20050328
  Serious: Yes (Other)
  Sender: FDA-Public Use
  Company Number: 2004114766

PATIENT
  Age: 65 Year
  Sex: Male
  Weight: 62 kg

DRUGS (5)
  1. ATORVASTATIN (ATORVASTATIN) [Suspect]
     Indication: HYPERCHOLESTEROLAEMIA
     Dosage: 20 MG, ORAL
     Route: 048
     Dates: start: 20040802, end: 20041112
  2. LOSARTAN (LOSARTAN) [Concomitant]
  3. SYMBICORT TURBUHALER ^DRACO^ (BUDESONIDE, FORMOTEROL FUMARATE) [Concomitant]
  4. AMLODIPINE [Concomitant]
  5. BENDROFLUMETHIAZIDE (BENDROFLUMETHIAZIDE) [Concomitant]

REACTIONS (3)
  - FACE OEDEMA [None]
  - PARAESTHESIA [None]
  - TONGUE OEDEMA [None]
